FAERS Safety Report 20790894 (Version 1)
Quarter: 2022Q2

REPORT INFORMATION
  Report Type: Other
  Country: US (occurrence: US)
  Receive Date: 20220505
  Receipt Date: 20220505
  Transmission Date: 20220721
  Serious: No
  Sender: FDA-Public Use
  Company Number: US-DECIPHERA PHARMACEUTICALS LLC-2022US000363

PATIENT
  Age: 72 Year
  Sex: Male

DRUGS (1)
  1. QINLOCK [Suspect]
     Active Substance: RIPRETINIB
     Indication: Product used for unknown indication
     Dosage: UNK UNK, QD

REACTIONS (3)
  - Diarrhoea [Unknown]
  - Headache [Unknown]
  - Off label use [Unknown]
